FAERS Safety Report 7729467-8 (Version None)
Quarter: 2011Q3

REPORT INFORMATION
  Report Type: 
  Country: None (occurrence: None)
  Receive Date: 20110906
  Receipt Date: 20110825
  Transmission Date: 20111222
  Serious: Yes (Hospitalization)
  Sender: FDA-Public Use
  Company Number: US-UCBSA-040121

PATIENT
  Sex: Female
  Weight: 63.64 kg

DRUGS (1)
  1. CIMZIA [Suspect]
     Indication: CROHN'S DISEASE
     Route: 058
     Dates: start: 20090924, end: 20110801

REACTIONS (2)
  - BLOOD POTASSIUM DECREASED [None]
  - FEELING ABNORMAL [None]
